FAERS Safety Report 12880545 (Version 1)
Quarter: 2016Q4

REPORT INFORMATION
  Report Type: Spontaneous
  Country: US (occurrence: US)
  Receive Date: 20161024
  Receipt Date: 20161024
  Transmission Date: 20170207
  Serious: Yes (Other)
  Sender: FDA-Public Use
  Company Number: None

PATIENT
  Age: 52 Year
  Sex: Male
  Weight: 85.95 kg

DRUGS (10)
  1. SAW PALMETTO [Concomitant]
     Active Substance: SAW PALMETTO
  2. GOLYTELY [Suspect]
     Active Substance: POLYETHYLENE GLYCOL 3350\POTASSIUM CHLORIDE\SODIUM BICARBONATE\SODIUM CHLORIDE\SODIUM SULFATE ANHYDROUS
     Indication: BOWEL PREPARATION
     Dates: start: 20161009, end: 20161009
  3. OX COD [Concomitant]
  4. LISINOPRIL. [Concomitant]
     Active Substance: LISINOPRIL
  5. RANITIDINE. [Concomitant]
     Active Substance: RANITIDINE
  6. FLOWMAX [Concomitant]
  7. ALEGERA ALLERGY [Concomitant]
  8. FLUTICASONE [Concomitant]
     Active Substance: FLUTICASONE\FLUTICASONE PROPIONATE
  9. VITAMIN D2 [Concomitant]
     Active Substance: ERGOCALCIFEROL
  10. GABAPENTIN. [Concomitant]
     Active Substance: GABAPENTIN

REACTIONS (6)
  - Blister [None]
  - Haemorrhoidal haemorrhage [None]
  - Genital erythema [None]
  - Vomiting [None]
  - Throat irritation [None]
  - Diarrhoea [None]

NARRATIVE: CASE EVENT DATE: 20161009
